FAERS Safety Report 23443389 (Version 2)
Quarter: 2024Q1

REPORT INFORMATION
  Report Type: Spontaneous
  Country: US (occurrence: US)
  Receive Date: 20240125
  Receipt Date: 20240314
  Transmission Date: 20240410
  Serious: No
  Sender: FDA-Public Use
  Company Number: US-PFIZER INC-PV202400010290

PATIENT
  Age: 72 Year
  Sex: Female
  Weight: 68.027 kg

DRUGS (10)
  1. PAXLOVID [Suspect]
     Active Substance: NIRMATRELVIR\RITONAVIR
     Indication: COVID-19 treatment
     Dosage: UNK
     Dates: start: 20240118, end: 20240122
  2. AMBIEN [Concomitant]
     Active Substance: ZOLPIDEM TARTRATE
     Dosage: UNK, 1X/DAY (NIGHTLY)
     Dates: start: 20231223, end: 20240224
  3. PROGESTERONE [Concomitant]
     Active Substance: PROGESTERONE
     Dosage: 100 MG
     Route: 048
     Dates: start: 20231224, end: 20240220
  4. ESTRADIOL [Concomitant]
     Active Substance: ESTRADIOL
     Dosage: 10 MG
  5. TESTOSTERONE [Concomitant]
     Active Substance: TESTOSTERONE
     Dosage: UNK
     Dates: start: 20231124
  6. WELLBUTRIN [Concomitant]
     Active Substance: BUPROPION HYDROCHLORIDE
     Dosage: 150 MG
     Dates: start: 20231123
  7. CYMBALTA [Concomitant]
     Active Substance: DULOXETINE HYDROCHLORIDE
     Dosage: 60 MG
  8. CYMBALTA [Concomitant]
     Active Substance: DULOXETINE HYDROCHLORIDE
     Dosage: 15 MG
     Dates: start: 20231123, end: 20240124
  9. MUCINEX [Concomitant]
     Active Substance: GUAIFENESIN
     Indication: Increased viscosity of bronchial secretion
     Dosage: UNK, 2X/DAY
     Dates: start: 20240118, end: 20240128
  10. MUCINEX [Concomitant]
     Active Substance: GUAIFENESIN
     Dosage: 1 NIGHTLY
     Dates: start: 20240128, end: 20240215

REACTIONS (8)
  - Dysgeusia [Recovered/Resolved]
  - Diarrhoea [Recovered/Resolved]
  - Abnormal faeces [Recovered/Resolved]
  - Headache [Recovered/Resolved]
  - Migraine [Recovered/Resolved]
  - Dizziness [Recovered/Resolved]
  - Nausea [Recovered/Resolved]
  - Hypoaesthesia oral [Recovered/Resolved]

NARRATIVE: CASE EVENT DATE: 20240119
